FAERS Safety Report 8922229 (Version 1)
Quarter: 2012Q4

REPORT INFORMATION
  Report Type: 
  Country: BR (occurrence: BR)
  Receive Date: 20121123
  Receipt Date: 20121123
  Transmission Date: 20130627
  Serious: Yes (Other)
  Sender: FDA-Public Use
  Company Number: BR-PFIZER INC-2012293750

PATIENT
  Age: 62 Year
  Sex: Male

DRUGS (2)
  1. CITALOR [Suspect]
     Indication: CHOLESTEROL HIGH
     Dosage: 20 mg, once daily
     Route: 048
     Dates: start: 201203, end: 201204
  2. PURAN T4 [Concomitant]
     Indication: THYROID DISORDER

REACTIONS (2)
  - Amnesia [Unknown]
  - Dizziness [Unknown]
